FAERS Safety Report 13510290 (Version 2)
Quarter: 2017Q2

REPORT INFORMATION
  Report Type: Spontaneous
  Country: HU (occurrence: HU)
  Receive Date: 20170503
  Receipt Date: 20170607
  Transmission Date: 20170830
  Serious: Yes (Death, Other)
  Sender: FDA-Public Use
  Company Number: HU-JNJFOC-20170426408

PATIENT

DRUGS (1)
  1. IBRUTINIB [Suspect]
     Active Substance: IBRUTINIB
     Indication: CHRONIC LYMPHOCYTIC LEUKAEMIA
     Route: 048

REACTIONS (19)
  - Richter^s syndrome [Fatal]
  - Atrial fibrillation [Unknown]
  - Myalgia [Unknown]
  - Neutropenia [Unknown]
  - Asthenia [Fatal]
  - Muscle haemorrhage [Unknown]
  - Muscle abscess [Unknown]
  - Acute myeloid leukaemia [Fatal]
  - Ventricular fibrillation [Unknown]
  - Myelodysplastic syndrome [Fatal]
  - Arthralgia [Unknown]
  - Cough [Unknown]
  - Autoimmune haemolytic anaemia [Unknown]
  - Skin haemorrhage [Unknown]
  - Haematochezia [Unknown]
  - Diarrhoea [Unknown]
  - Drug resistance [Fatal]
  - Pancreatitis [Unknown]
  - Haematuria [Unknown]
